FAERS Safety Report 14112230 (Version 3)
Quarter: 2017Q4

REPORT INFORMATION
  Report Type: Other
  Country: IR (occurrence: IR)
  Receive Date: 20171020
  Receipt Date: 20171031
  Transmission Date: 20180321
  Serious: Yes (Death)
  Sender: FDA-Public Use
  Company Number: IR-GEHC-2017CSU003294

PATIENT

DRUGS (1)
  1. VISIPAQUE [Suspect]
     Active Substance: IODIXANOL
     Indication: PULMONARY ARTERIAL HYPERTENSION
     Dosage: 25 ML, SINGLE
     Route: 042
     Dates: start: 20170930, end: 20170930

REACTIONS (5)
  - Cyanosis [Fatal]
  - Bradycardia [Fatal]
  - Dyspnoea [Fatal]
  - Cardio-respiratory arrest [Fatal]
  - Pulse abnormal [Fatal]

NARRATIVE: CASE EVENT DATE: 20170930
